FAERS Safety Report 9468987 (Version 5)
Quarter: 2014Q4

REPORT INFORMATION
  Report Type: Report from Study
  Country: DE (occurrence: DE)
  Receive Date: 20130821
  Receipt Date: 20141226
  Transmission Date: 20150529
  Serious: Yes (Hospitalization)
  Sender: FDA-Public Use
  Company Number: DE-UCBSA-095882

PATIENT
  Sex: Female
  Weight: 70 kg

DRUGS (14)
  1. DECORTIN [Concomitant]
     Active Substance: PREDNISONE
     Indication: RHEUMATOID ARTHRITIS
     Dosage: 5 MG, ONCE DAILY (QD)
     Route: 048
     Dates: start: 20070719
  2. CERTOLIZUMAB PEGOL RA [Suspect]
     Active Substance: CERTOLIZUMAB PEGOL
     Indication: RHEUMATOID ARTHRITIS
     Dosage: 200 MG; NO OF DOSES RECEIVED: 24
     Route: 058
     Dates: start: 20120907, end: 20130426
  3. L-THYROXINE [Concomitant]
     Active Substance: LEVOTHYROXINE
     Indication: POST PROCEDURAL HYPOTHYROIDISM
     Dosage: 125 ?G, ONCE DAILY (QD)
     Route: 048
  4. METEX [Suspect]
     Active Substance: METFORMIN HYDROCHLORIDE
     Dosage: DOSE: 15 MG
     Dates: start: 200906, end: 2010
  5. METEX [Suspect]
     Active Substance: METFORMIN HYDROCHLORIDE
     Dosage: 25 MG, WEEKLY (QW)
     Route: 058
     Dates: start: 20100517
  6. KOCHSALZ [Concomitant]
     Dosage: UNK UNK, 3X/DAY (TID)
  7. CETRIZINE [Concomitant]
     Active Substance: CETIRIZINE HYDROCHLORIDE
     Dosage: UNK UNK, ONCE DAILY (QD)
  8. PRETERX [Concomitant]
     Dosage: 2.5 MG/ 0.625 MG
  9. DECORTIN [Concomitant]
     Active Substance: PREDNISONE
     Dosage: 10 MG, ONCE DAILY (QD)
  10. RAMIPRIL. [Concomitant]
     Active Substance: RAMIPRIL
     Indication: HYPERTENSION
     Dosage: 2.5 MG, ONCE DAILY (QD)
     Route: 048
  11. KALINOR [Concomitant]
     Active Substance: POTASSIUM CITRATE
  12. SIMVAHEXAL [Concomitant]
     Active Substance: SIMVASTATIN
     Indication: HYPERLIPIDAEMIA
     Dosage: 40 MG, ONCE DAILY (QD)
     Route: 048
  13. DEKRISTOL [Concomitant]
     Active Substance: CHOLECALCIFEROL
     Dosage: 800 UNITS
  14. METEX [Suspect]
     Active Substance: METFORMIN HYDROCHLORIDE
     Indication: RHEUMATOID ARTHRITIS
     Dosage: DOSE: 25 MG/WEEK
     Dates: start: 200905, end: 200905

REACTIONS (1)
  - Herpes zoster [Recovered/Resolved]

NARRATIVE: CASE EVENT DATE: 20130426
